FAERS Safety Report 7399470-9 (Version None)
Quarter: 2011Q2

REPORT INFORMATION
  Report Type: 
  Country: None (occurrence: None)
  Receive Date: 20110407
  Receipt Date: 20110404
  Transmission Date: 20111010
  Serious: Yes (Death)
  Sender: FDA-Public Use
  Company Number: PHHY2011BR27728

PATIENT
  Sex: Female

DRUGS (5)
  1. CAPTOPRIL [Concomitant]
  2. BEROTEC [Concomitant]
  3. FORASEQ [Suspect]
  4. DRUG THERAPY NOS [Concomitant]
     Indication: CHRONIC OBSTRUCTIVE PULMONARY DISEASE
  5. ALBUTEROL SULFATE AUTOHALER [Concomitant]

REACTIONS (2)
  - PNEUMONIA [None]
  - SEPSIS [None]
